FAERS Safety Report 20630204 (Version 4)
Quarter: 2022Q2

REPORT INFORMATION
  Report Type: Spontaneous
  Country: JP (occurrence: JP)
  Receive Date: 20220324
  Receipt Date: 20220607
  Transmission Date: 20220721
  Serious: No
  Sender: FDA-Public Use
  Company Number: JP-GSKNCCC-Case-01449220_AE-56079

PATIENT

DRUGS (6)
  1. SOTROVIMAB [Suspect]
     Active Substance: SOTROVIMAB
     Indication: COVID-19
     Dosage: 500 MG
     Dates: start: 20220315, end: 20220315
  2. DARBEPOETIN ALFA INJECTION [Concomitant]
     Indication: Autoimmune haemolytic anaemia
     Dosage: UNK
  3. TEICOPLANIN [Concomitant]
     Active Substance: TEICOPLANIN
     Indication: Autoimmune haemolytic anaemia
     Dosage: UNK
  4. BISOPROLOL [Concomitant]
     Active Substance: BISOPROLOL
     Indication: Autoimmune haemolytic anaemia
     Dosage: UNK
  5. SARPOGRELATE HYDROCHLORIDE [Concomitant]
     Active Substance: SARPOGRELATE HYDROCHLORIDE
     Indication: Autoimmune haemolytic anaemia
     Dosage: UNK
  6. LANSOPRAZOLE [Concomitant]
     Active Substance: LANSOPRAZOLE
     Indication: Autoimmune haemolytic anaemia
     Dosage: UNK

REACTIONS (1)
  - Neutrophil count decreased [Recovered/Resolved]

NARRATIVE: CASE EVENT DATE: 20220317
